FAERS Safety Report 8122765-8 (Version None)
Quarter: 2012Q1

REPORT INFORMATION
  Report Type: 
  Country: None (occurrence: None)
  Receive Date: 20120208
  Receipt Date: 20120130
  Transmission Date: 20120608
  Serious: No
  Sender: FDA-Public Use
  Company Number: US-BIOGENIDEC-2012BI003888

PATIENT
  Sex: Female

DRUGS (2)
  1. ASTHMA INHALER [Concomitant]
     Indication: ASTHMA
  2. TYSABRI [Suspect]
     Indication: MULTIPLE SCLEROSIS
     Route: 042
     Dates: start: 20101209

REACTIONS (10)
  - FATIGUE [None]
  - GAIT DISTURBANCE [None]
  - CHOKING [None]
  - RED BLOOD CELL COUNT DECREASED [None]
  - TOOTHACHE [None]
  - TYPE 2 DIABETES MELLITUS [None]
  - ARTHRITIS [None]
  - CATARACT [None]
  - DYSPHAGIA [None]
  - POST PROCEDURAL HAEMATOMA [None]
